FAERS Safety Report 23343897 (Version 1)
Quarter: 2023Q4

REPORT INFORMATION
  Report Type: Spontaneous
  Country: JP (occurrence: JP)
  Receive Date: 20231227
  Receipt Date: 20231227
  Transmission Date: 20240110
  Serious: Yes (Other)
  Sender: FDA-Public Use
  Company Number: 23_00027065(0)

PATIENT
  Age: 68 Year
  Sex: Male

DRUGS (5)
  1. DEXMEDETOMIDINE HYDROCHLORIDE [Suspect]
     Active Substance: DEXMEDETOMIDINE HYDROCHLORIDE
     Indication: Sedation
     Dosage: 0.4 MICROGRAM/KILOGRAM/HOUR, LOADING INFUSION (4 UG/KG)
     Route: 042
  2. DEXMEDETOMIDINE HYDROCHLORIDE [Suspect]
     Active Substance: DEXMEDETOMIDINE HYDROCHLORIDE
     Dosage: 0.4 UG/KG/H, MAINTENANCE DOSE (4 UG/KG)
     Route: 042
  3. PENTAZOCINE [Concomitant]
     Active Substance: PENTAZOCINE
     Indication: Sedation
     Dosage: 30 MILLIGRAM
     Route: 051
  4. PROPOFOL [Concomitant]
     Active Substance: PROPOFOL
     Indication: Sedation
     Dosage: 1.25 MG/KG (BOLUS INJECTION) (1.25 MG/KG)
     Route: 042
  5. PROPOFOL [Concomitant]
     Active Substance: PROPOFOL
     Dosage: 0.4-1.0 ML/KG/H (MAINTENANCE DOSE)
     Route: 042

REACTIONS (1)
  - Arteriospasm coronary [Recovered/Resolved]
